FAERS Safety Report 6493763-5 (Version None)
Quarter: 2009Q4

REPORT INFORMATION
  Report Type: 
  Country: None (occurrence: None)
  Receive Date: 20091214
  Receipt Date: 20081103
  Transmission Date: 20100525
  Serious: Yes (Other)
  Sender: FDA-Public Use
  Company Number: US-BRISTOL-MYERS SQUIBB COMPANY-14365944

PATIENT
  Sex: Male

DRUGS (1)
  1. ABILIFY [Suspect]
     Dosage: 1 DOSAGE FORM=3 MONTH PRESCRIPTION.
     Route: 048

REACTIONS (5)
  - HYPERSOMNIA [None]
  - MUSCULOSKELETAL STIFFNESS [None]
  - OVERDOSE [None]
  - SEXUAL DYSFUNCTION [None]
  - SUICIDE ATTEMPT [None]
